FAERS Safety Report 22523692 (Version 1)
Quarter: 2023Q2

REPORT INFORMATION
  Report Type: Spontaneous
  Country: US (occurrence: US)
  Receive Date: 20230606
  Receipt Date: 20230606
  Transmission Date: 20230721
  Serious: No
  Sender: FDA-Public Use
  Company Number: US-SUN PHARMACEUTICAL INDUSTRIES LTD-2023R1-383494

PATIENT
  Age: 21 Year
  Sex: Female
  Weight: 69.4 kg

DRUGS (1)
  1. SULFAMETHOXAZOLE\TRIMETHOPRIM [Suspect]
     Active Substance: SULFAMETHOXAZOLE\TRIMETHOPRIM
     Indication: Urinary tract infection
     Dosage: UNK
     Route: 065
     Dates: start: 20230321

REACTIONS (5)
  - Headache [Unknown]
  - Dizziness [Unknown]
  - Back pain [Unknown]
  - Rash [Unknown]
  - Pyrexia [Unknown]
